FAERS Safety Report 21255320 (Version 13)
Quarter: 2023Q4

REPORT INFORMATION
  Report Type: Spontaneous
  Country: US (occurrence: US)
  Receive Date: 20220825
  Receipt Date: 20231110
  Transmission Date: 20240110
  Serious: No
  Sender: FDA-Public Use
  Company Number: US-BRISTOL-MYERS SQUIBB COMPANY-2022-095532

PATIENT
  Age: 75 Year
  Sex: Female

DRUGS (9)
  1. REVLIMID [Suspect]
     Active Substance: LENALIDOMIDE
     Indication: Plasma cell myeloma
     Route: 048
     Dates: start: 202207, end: 202210
  2. REVLIMID [Suspect]
     Active Substance: LENALIDOMIDE
     Route: 048
     Dates: start: 202209, end: 202212
  3. REVLIMID [Suspect]
     Active Substance: LENALIDOMIDE
     Dosage: DAILY
     Route: 048
     Dates: start: 20230117
  4. REVLIMID [Suspect]
     Active Substance: LENALIDOMIDE
     Route: 048
     Dates: start: 20211216
  5. REVLIMID [Suspect]
     Active Substance: LENALIDOMIDE
     Route: 048
     Dates: start: 20211216
  6. DEXAMETHASONE [Suspect]
     Active Substance: DEXAMETHASONE
     Indication: Product used for unknown indication
  7. LISINOPRIL [Concomitant]
     Active Substance: LISINOPRIL
     Indication: Product used for unknown indication
  8. VELCADE [Concomitant]
     Active Substance: BORTEZOMIB
     Indication: Plasma cell myeloma
     Route: 058
     Dates: start: 20220726, end: 20220729
  9. ATORVASTATIN [Concomitant]
     Active Substance: ATORVASTATIN
     Indication: Product used for unknown indication

REACTIONS (28)
  - Myalgia [Unknown]
  - Chest discomfort [Unknown]
  - Pruritus [Unknown]
  - Muscle spasms [Unknown]
  - Fatigue [Not Recovered/Not Resolved]
  - Brain fog [Unknown]
  - Swelling face [Unknown]
  - Pain [Unknown]
  - Confusional state [Recovered/Resolved]
  - Increased appetite [Unknown]
  - Dysuria [Unknown]
  - Abdominal discomfort [Unknown]
  - Diarrhoea [Unknown]
  - Sluggishness [Unknown]
  - Lymphadenopathy [Unknown]
  - Depression [Unknown]
  - Faeces pale [Unknown]
  - Erythema [Unknown]
  - Gingival swelling [Recovered/Resolved]
  - Oropharyngeal pain [Unknown]
  - Nocturia [Unknown]
  - Respiratory tract infection [Unknown]
  - Asthenia [Unknown]
  - Skin exfoliation [Unknown]
  - Coronavirus infection [Unknown]
  - Vertigo [Unknown]
  - Dizziness [Not Recovered/Not Resolved]
  - Rash [Unknown]

NARRATIVE: CASE EVENT DATE: 20230227
